FAERS Safety Report 20635916 (Version 1)
Quarter: 2022Q1

REPORT INFORMATION
  Report Type: Spontaneous
  Country: BR (occurrence: None)
  Receive Date: 20220325
  Receipt Date: 20220325
  Transmission Date: 20220423
  Serious: Yes (Other)
  Sender: FDA-Public Use
  Company Number: BR-Orion Corporation ORION PHARMA-ENT 2022-0038

PATIENT
  Sex: Female

DRUGS (1)
  1. COMTAN [Suspect]
     Active Substance: ENTACAPONE
     Indication: Parkinson^s disease
     Route: 065

REACTIONS (2)
  - Parkinson^s disease [Unknown]
  - Product availability issue [Unknown]
